FAERS Safety Report 24071443 (Version 1)
Quarter: 2024Q3

REPORT INFORMATION
  Report Type: Report from Study
  Country: DE (occurrence: DE)
  Receive Date: 20240710
  Receipt Date: 20240710
  Transmission Date: 20241016
  Serious: No
  Sender: ROCHE
  Company Number: DE-ROCHE-3383725

PATIENT
  Age: 26 Year
  Sex: Female
  Weight: 23.0 kg

DRUGS (1)
  1. EVRYSDI [Suspect]
     Active Substance: RISDIPLAM
     Indication: Muscle atrophy
     Dosage: ON 19/JUN/2023, 27/FEB/2024, SHE RECEIVED LAST DOSE OF RISDIPLAM.
     Route: 048
     Dates: start: 20210824

REACTIONS (2)
  - Nasopharyngitis [Recovered/Resolved]
  - Headache [Recovered/Resolved]

NARRATIVE: CASE EVENT DATE: 20230612
